FAERS Safety Report 9645681 (Version 1)
Quarter: 2013Q4

REPORT INFORMATION
  Report Type: Spontaneous
  Country: US (occurrence: US)
  Receive Date: 20131025
  Receipt Date: 20131025
  Transmission Date: 20140711
  Serious: Yes (Other)
  Sender: FDA-Public Use
  Company Number: US-ACTAVIS-2013-18917

PATIENT
  Age: 26 Year
  Sex: Female

DRUGS (6)
  1. METHYLPREDNISOLONE ACETATE (WATSON LABORATORIES) [Suspect]
     Indication: IMMUNOSUPPRESSION
     Dosage: UNK
     Route: 065
  2. MYCOPHENOLATE MOFETIL (UNKNOWN) [Suspect]
     Indication: IMMUNOSUPPRESSION
     Dosage: UNK
     Route: 065
  3. TACROLIMUS (WATSON LABORATORIES) [Suspect]
     Indication: IMMUNOSUPPRESSION
     Dosage: UNK
     Route: 065
  4. RITUXIMAB [Suspect]
     Indication: IMMUNOSUPPRESSION
     Dosage: 375 MG/M2, SINGLE
     Route: 065
  5. RITUXIMAB [Suspect]
     Dosage: UNK
     Route: 065
  6. THYMOGLOBULIN [Suspect]
     Indication: IMMUNOSUPPRESSION
     Dosage: UNK
     Route: 065

REACTIONS (1)
  - Neutropenia [Recovering/Resolving]
